FAERS Safety Report 20753813 (Version 1)
Quarter: 2022Q2

REPORT INFORMATION
  Report Type: Spontaneous
  Country: US (occurrence: None)
  Receive Date: 20220426
  Receipt Date: 20220426
  Transmission Date: 20220720
  Serious: No
  Sender: FDA-Public Use
  Company Number: US-ROCHE-3026326

PATIENT
  Sex: Male

DRUGS (14)
  1. ESBRIET [Suspect]
     Active Substance: PIRFENIDONE
     Indication: Idiopathic pulmonary fibrosis
     Route: 048
  2. LORAZEPAM [Concomitant]
     Active Substance: LORAZEPAM
  3. VENLAFAXINE [Concomitant]
     Active Substance: VENLAFAXINE HYDROCHLORIDE
  4. CALCIUM [Concomitant]
     Active Substance: CALCIUM
  5. DOXAZOSIN [Concomitant]
     Active Substance: DOXAZOSIN MESYLATE
  6. GAS RELIEF [Concomitant]
     Active Substance: DIMETHICONE
  7. MIRALAX [Concomitant]
     Active Substance: POLYETHYLENE GLYCOL 3350
     Dosage: DOSE : 17 GM/SCOOP
  8. MIRTAZAPINE [Concomitant]
     Active Substance: MIRTAZAPINE
  9. ONDANSETRON [Concomitant]
     Active Substance: ONDANSETRON
  10. OXYCODONE [Concomitant]
     Active Substance: OXYCODONE
     Dosage: DOSE: 7.5 - 325 M
  11. PREDNISONE [Concomitant]
     Active Substance: PREDNISONE
  12. PROCHLORPERAZINE MALEATE [Concomitant]
     Active Substance: PROCHLORPERAZINE MALEATE
  13. TUMS CHEWIES [Concomitant]
  14. TYLENOL [Concomitant]
     Active Substance: ACETAMINOPHEN

REACTIONS (1)
  - Nausea [Not Recovered/Not Resolved]
